FAERS Safety Report 5489975-X (Version None)
Quarter: 2007Q4

REPORT INFORMATION
  Report Type: 
  Country: None (occurrence: None)
  Receive Date: 20071018
  Receipt Date: 20071004
  Transmission Date: 20080405
  Serious: Yes (Hospitalization)
  Sender: FDA-Public Use
  Company Number: FR-ROCHE-515932

PATIENT
  Age: 70 Year
  Sex: Female
  Weight: 60 kg

DRUGS (5)
  1. BONIVA [Suspect]
     Indication: OSTEOPOROSIS
     Dosage: THE PATIENT ONLY TOOK ONE DOSE FORM.
     Route: 048
     Dates: start: 20070619
  2. RIVOTRIL [Suspect]
     Indication: DRUG USE FOR UNKNOWN INDICATION
     Dosage: DOSAGE REGIMEN: 3 DROPS
     Route: 065
  3. DOLIPRANE [Concomitant]
     Dosage: DOSING REGIMEN REPORTED AS 2 DOSES.
  4. OROCAL [Concomitant]
     Indication: OSTEOPOROSIS
  5. ART 50 [Concomitant]
     Indication: DRUG USE FOR UNKNOWN INDICATION
     Dosage: DOSAGE REGIMEN: 2 DOSES

REACTIONS (3)
  - FALL [None]
  - LUMBAR VERTEBRAL FRACTURE [None]
  - VERTIGO [None]
